FAERS Safety Report 14914416 (Version 1)
Quarter: 2018Q2

REPORT INFORMATION
  Report Type: Report from Study
  Country: US (occurrence: US)
  Receive Date: 20180518
  Receipt Date: 20180518
  Transmission Date: 20180711
  Serious: Yes (Other)
  Sender: FDA-Public Use
  Company Number: US-JAZZ-2017-US-016121

PATIENT
  Sex: Male

DRUGS (3)
  1. XYREM [Suspect]
     Active Substance: SODIUM OXYBATE
     Indication: NARCOLEPSY
     Dosage: 2.25 G, BID
     Route: 048
     Dates: start: 201711, end: 2017
  2. XYREM [Suspect]
     Active Substance: SODIUM OXYBATE
     Dosage: 3 G, QD
     Route: 048
     Dates: start: 2017, end: 201803
  3. XYREM [Suspect]
     Active Substance: SODIUM OXYBATE
     Indication: CATAPLEXY
     Dosage: 3.5 G, QD
     Route: 048
     Dates: start: 2017, end: 2017

REACTIONS (16)
  - Anxiety [Not Recovered/Not Resolved]
  - Myalgia [Unknown]
  - Suicidal ideation [Unknown]
  - Affect lability [Unknown]
  - Nervousness [Unknown]
  - Headache [Unknown]
  - Agitation [Unknown]
  - Depression [Unknown]
  - Insomnia [Not Recovered/Not Resolved]
  - Feeling abnormal [Unknown]
  - Fear [Unknown]
  - Nasal congestion [Unknown]
  - Hunger [Unknown]
  - Heart rate irregular [Unknown]
  - Abnormal behaviour [Unknown]
  - Abdominal pain upper [Unknown]

NARRATIVE: CASE EVENT DATE: 2017
